FAERS Safety Report 4506789-5 (Version None)
Quarter: 2004Q4

REPORT INFORMATION
  Report Type: 
  Country: None (occurrence: None)
  Receive Date: 20041122
  Receipt Date: 20031017
  Transmission Date: 20050328
  Serious: Yes (Death)
  Sender: FDA-Public Use
  Company Number: US-GLAXOSMITHKLINE-A0430907A

PATIENT
  Age: 37 Year
  Sex: Male

DRUGS (3)
  1. PAXIL [Suspect]
     Indication: ILL-DEFINED DISORDER
     Route: 048
     Dates: start: 20020601
  2. BUSPAR [Concomitant]
  3. ATARAX [Concomitant]

REACTIONS (12)
  - AGITATION [None]
  - AKATHISIA [None]
  - ASPHYXIA [None]
  - CARBON MONOXIDE POISONING [None]
  - COMPLETED SUICIDE [None]
  - CONFUSIONAL STATE [None]
  - DEPERSONALISATION [None]
  - DISABILITY [None]
  - DISTURBANCE IN ATTENTION [None]
  - FLAT AFFECT [None]
  - PAIN [None]
  - SELF-INJURIOUS IDEATION [None]
